FAERS Safety Report 5061439-7 (Version None)
Quarter: 2006Q3

REPORT INFORMATION
  Report Type: 
  Country: None (occurrence: None)
  Receive Date: 20060719
  Receipt Date: 20060719
  Transmission Date: 20061208
  Serious: Yes (Hospitalization)
  Sender: FDA-Public Use
  Company Number: None

PATIENT
  Age: 73 Year
  Sex: Male

DRUGS (10)
  1. NPH INSULIN [Suspect]
     Indication: DIABETES MELLITUS INSULIN-DEPENDENT
     Dosage: 8 UNITS QAM  4 UNITS QPM
     Dates: start: 19950701
  2. OXYCONTIN [Concomitant]
  3. PRAIPEXOLE [Concomitant]
  4. GABAPENTIN [Concomitant]
  5. SERTRALINE [Concomitant]
  6. ASPIRIN [Concomitant]
  7. FUROSEMIDE [Concomitant]
  8. ZOCOR [Concomitant]
  9. AVANDIA [Concomitant]
  10. FELODIPINE [Concomitant]

REACTIONS (1)
  - HYPOGLYCAEMIA [None]
